FAERS Safety Report 17670649 (Version 1)
Quarter: 2020Q2

REPORT INFORMATION
  Report Type: Spontaneous
  Country: US (occurrence: US)
  Receive Date: 20200414
  Receipt Date: 20200414
  Transmission Date: 20200713
  Serious: No
  Sender: FDA-Public Use
  Company Number: None

PATIENT
  Age: 39 Year
  Sex: Female

DRUGS (1)
  1. XALKORI [Suspect]
     Active Substance: CRIZOTINIB
     Indication: LUNG NEOPLASM MALIGNANT
     Dosage: ?          OTHER FREQUENCY:TWICEDAILY ;?
     Route: 048
     Dates: start: 20200221

REACTIONS (3)
  - Metastases to central nervous system [None]
  - Brain neoplasm [None]
  - Lung cancer metastatic [None]

NARRATIVE: CASE EVENT DATE: 20200401
